FAERS Safety Report 12784875 (Version 1)
Quarter: 2016Q3

REPORT INFORMATION
  Report Type: Not Available
  Country: CN (occurrence: CN)
  Receive Date: 20160927
  Receipt Date: 20160927
  Transmission Date: 20161109
  Serious: Yes (Hospitalization)
  Sender: FDA-Public Use
  Company Number: CN-NAPPMUNDI-GBR-2016-0040434

PATIENT
  Age: 46 Year
  Sex: Female
  Weight: 46 kg

DRUGS (10)
  1. GLONOIN [Concomitant]
  2. DOXOFYLLINE [Concomitant]
     Active Substance: DOXOFYLLINE
  3. HYDROCHLOROTHIAZIDE. [Concomitant]
     Active Substance: HYDROCHLOROTHIAZIDE
  4. NORMAL SALINE [Concomitant]
     Active Substance: SODIUM CHLORIDE
  5. TAMOXIFEN CITRATE. [Concomitant]
     Active Substance: TAMOXIFEN CITRATE
     Dosage: UNK
  6. SPIRONOLACTONE. [Concomitant]
     Active Substance: SPIRONOLACTONE
  7. GLUCOSE [Concomitant]
     Active Substance: DEXTROSE
  8. MORPHINE HYDROCHLORIDE [Concomitant]
     Active Substance: MORPHINE HYDROCHLORIDE
  9. METHYLPREDISOLONE [Concomitant]
     Active Substance: METHYLPREDNISOLONE
  10. OXYCODONE HCL PR TABLET [Suspect]
     Active Substance: OXYCODONE HYDROCHLORIDE
     Indication: CANCER PAIN
     Dosage: 10 MG, Q12H
     Route: 048
     Dates: start: 20160628, end: 20160714

REACTIONS (10)
  - Chest discomfort [Unknown]
  - Asthma [Unknown]
  - Constipation [Unknown]
  - Palpitations [Unknown]
  - Nausea [Not Recovered/Not Resolved]
  - Vomiting [Recovering/Resolving]
  - Asphyxia [Unknown]
  - Chest pain [Unknown]
  - Dyspnoea [Unknown]
  - Productive cough [Unknown]

NARRATIVE: CASE EVENT DATE: 20160629
